FAERS Safety Report 9728314 (Version 1)
Quarter: 2013Q4

REPORT INFORMATION
  Report Type: Spontaneous
  Country: US (occurrence: US)
  Receive Date: 20131204
  Receipt Date: 20131204
  Transmission Date: 20140711
  Serious: No
  Sender: FDA-Public Use
  Company Number: US-BAYER-2013-143065

PATIENT
  Age: 46 Year
  Sex: Female

DRUGS (1)
  1. MIRENA [Suspect]
     Indication: ENDOMETRIOSIS
     Dosage: 20 MCG/24HR, CONT
     Route: 015
     Dates: start: 20121016, end: 201308

REACTIONS (4)
  - Dysgeusia [Recovering/Resolving]
  - Oral discomfort [Recovering/Resolving]
  - Weight decreased [Recovering/Resolving]
  - Off label use [None]
